FAERS Safety Report 24461496 (Version 1)
Quarter: 2024Q4

REPORT INFORMATION
  Report Type: Spontaneous
  Country: US (occurrence: None)
  Receive Date: 20241018
  Receipt Date: 20241018
  Transmission Date: 20250115
  Serious: Yes (Disabling, Other)
  Sender: Public
  Company Number: None

PATIENT
  Age: 26 Year
  Sex: Female
  Weight: 67.5 kg

DRUGS (5)
  1. MONTELUKAST SODIUM [Suspect]
     Active Substance: MONTELUKAST SODIUM
     Indication: Rhinitis allergic
     Dosage: OTHER QUANTITY : 1 TABLET(S);?FREQUENCY : AT BEDTIME;?
     Route: 048
  2. Amphetamine-Dextroamphetamine (ADDERALL) [Concomitant]
  3. cloNIDine HCl (CATAPRES) [Concomitant]
  4. LEVOCETIRIZINE DIHYDROCHLORIDE [Concomitant]
     Active Substance: LEVOCETIRIZINE DIHYDROCHLORIDE
  5. SPIRONOLACTONE [Concomitant]

REACTIONS (22)
  - Stevens-Johnson syndrome [None]
  - Toxic epidermal necrolysis [None]
  - Influenza like illness [None]
  - Insomnia [None]
  - Anxiety [None]
  - Panic attack [None]
  - Hallucination [None]
  - Abnormal dreams [None]
  - Somnambulism [None]
  - Sinusitis [None]
  - Tremor [None]
  - Palpitations [None]
  - Chest pain [None]
  - Temporomandibular pain and dysfunction syndrome [None]
  - Suicidal ideation [None]
  - Paraesthesia [None]
  - Hypoaesthesia [None]
  - Anxiety [None]
  - Aggression [None]
  - Epistaxis [None]
  - Dysphagia [None]
  - Dysuria [None]

NARRATIVE: CASE EVENT DATE: 20240109
